FAERS Safety Report 8073241-2 (Version None)
Quarter: 2012Q1

REPORT INFORMATION
  Report Type: 
  Country: None (occurrence: None)
  Receive Date: 20120123
  Receipt Date: 20120123
  Transmission Date: 20120608
  Serious: Yes (Hospitalization)
  Sender: FDA-Public Use
  Company Number: None

PATIENT
  Sex: Male
  Weight: 90.18 kg

DRUGS (18)
  1. IRINOTECAN HCL [Suspect]
     Dosage: 370 MG
     Dates: end: 20111129
  2. ASPIRIN [Concomitant]
  3. LORAZEPAM [Concomitant]
  4. PROCHLORPERAZINE [Concomitant]
  5. BEVACIZUMAB (RHUMAB VEGF) [Suspect]
     Dosage: 450 MG
     Dates: end: 20111129
  6. CARVEDILOL [Concomitant]
  7. MAGNESIUM HYDROXIDE TAB [Concomitant]
  8. NITROGLYCERIN [Concomitant]
  9. FLUOROURACIL [Suspect]
     Dosage: 825 MG
     Dates: end: 20111129
  10. LEUCOVORIN CALCIUM [Suspect]
     Dosage: 825 MG
     Dates: end: 20111129
  11. CHOLECALCIFEROL [Concomitant]
  12. MULTIPLE VITAMIN [Concomitant]
  13. AMLODIPINE [Concomitant]
  14. ATORVASTATIN [Concomitant]
  15. PROMETHAZINE [Concomitant]
  16. SIMETHICONE [Concomitant]
  17. COENZYME Q10 [Concomitant]
  18. IRBESARTAN [Concomitant]

REACTIONS (6)
  - DEHYDRATION [None]
  - NEUTROPENIA [None]
  - DIARRHOEA [None]
  - SYNCOPE [None]
  - LEUKOPENIA [None]
  - FATIGUE [None]
